FAERS Safety Report 12819749 (Version 1)
Quarter: 2016Q4

REPORT INFORMATION
  Report Type: Report from Study
  Country: US (occurrence: US)
  Receive Date: 20161006
  Receipt Date: 20161006
  Transmission Date: 20170207
  Serious: Yes (Other)
  Sender: FDA-Public Use
  Company Number: US-AMGEN-USASL2016005188

PATIENT
  Age: 71 Year
  Sex: Female

DRUGS (1)
  1. PROLIA [Suspect]
     Active Substance: DENOSUMAB
     Indication: PRODUCT USED FOR UNKNOWN INDICATION
     Dosage: UNK
     Route: 065
     Dates: start: 201312

REACTIONS (17)
  - Skin infection [Unknown]
  - Skin exfoliation [Unknown]
  - Scab [Unknown]
  - Blister rupture [Unknown]
  - Adverse drug reaction [Unknown]
  - Erysipelas [Unknown]
  - Arthralgia [Recovering/Resolving]
  - Erythema [Unknown]
  - Feeling abnormal [Unknown]
  - Burning sensation [Unknown]
  - Headache [Unknown]
  - Pain of skin [Unknown]
  - Pyrexia [Unknown]
  - Gait disturbance [Unknown]
  - Abdominal distension [Unknown]
  - Blister [Unknown]
  - Skin warm [Unknown]

NARRATIVE: CASE EVENT DATE: 201503
